FAERS Safety Report 7935953-8 (Version None)
Quarter: 2011Q4

REPORT INFORMATION
  Report Type: 
  Country: None (occurrence: None)
  Receive Date: 20111123
  Receipt Date: 20111115
  Transmission Date: 20120403
  Serious: Yes (Death, Hospitalization)
  Sender: FDA-Public Use
  Company Number: DE-UCBSA-027036

PATIENT
  Age: 75 Year
  Sex: Female
  Weight: 58 kg

DRUGS (19)
  1. DOSS [Concomitant]
     Indication: OSTEOPOROSIS
  2. RITUXIMAB [Concomitant]
     Dosage: 500 MG
     Dates: start: 20081105
  3. ACTRAPHANE READY TO USE SYRINGE 30 INNOLET [Concomitant]
     Dosage: IU - DOSAGE UNSPECIFIED
     Route: 058
     Dates: start: 20060201, end: 20110326
  4. SYMBICORT TUR 160/4.5 MCG [Concomitant]
     Indication: ASTHMA
     Dosage: 260/6/4.91 MICROGRAM
     Route: 045
  5. DICLO VOLTEREN DISPERSION [Concomitant]
     Dosage: ONCE DAILY
  6. CIMZIA [Suspect]
     Indication: RHEUMATOID ARTHRITIS
     Dosage: NUMBER OF DOSES: 19
     Route: 058
     Dates: start: 20100212, end: 20110112
  7. LEFLUNOMIDE [Suspect]
     Dates: start: 20110101, end: 20110303
  8. SYMBICORT TUR 160/4.5 MCG [Concomitant]
     Indication: CHRONIC OBSTRUCTIVE PULMONARY DISEASE
     Dosage: 260/6/4.91 MICROGRAM
     Route: 045
  9. SPIRIVA [Concomitant]
     Indication: CHRONIC OBSTRUCTIVE PULMONARY DISEASE
     Route: 048
     Dates: end: 20110326
  10. CIMZIA [Suspect]
     Route: 058
     Dates: start: 20110131
  11. PANTOPRAZOLE SODIUM [Concomitant]
     Dosage: 20, ONCE DAILY
  12. LEFLUNOMIDE [Suspect]
     Indication: RHEUMATOID ARTHRITIS
     Dosage: 20
     Dates: start: 20010501, end: 20110112
  13. HUMALOG READY TO USE PEN [Concomitant]
     Indication: TYPE 2 DIABETES MELLITUS
     Dosage: 32/10/16 IE
     Route: 058
     Dates: start: 19960201, end: 20110326
  14. CIMZIA [Suspect]
     Route: 058
     Dates: start: 20110214, end: 20110303
  15. CIMZIA [Suspect]
     Route: 058
     Dates: start: 20110301, end: 20110326
  16. HUMAN INSULIN [Concomitant]
     Indication: TYPE 2 DIABETES MELLITUS
     Dosage: 10 IE ONCE A DAY
     Route: 058
  17. METOCLOPRAMIDE DROPS [Concomitant]
     Indication: NAUSEA
     Dosage: 4.21/4/3.57  3X20/DAY
     Dates: start: 20110201, end: 20110326
  18. INNOLET [Concomitant]
     Indication: TYPE 2 DIABETES MELLITUS
     Route: 058
     Dates: start: 19980201, end: 20110326
  19. NOVALGIN [Concomitant]
     Dosage: 4X30

REACTIONS (8)
  - PNEUMONIA [None]
  - BACTERIAL SEPSIS [None]
  - MYOCARDIAL INFARCTION [None]
  - DILATATION VENTRICULAR [None]
  - ABSCESS [None]
  - SPLENIC ABSCESS [None]
  - RENAL FAILURE ACUTE [None]
  - LIVER ABSCESS [None]
